FAERS Safety Report 21686148 (Version 1)
Quarter: 2022Q4

REPORT INFORMATION
  Report Type: Report from Study
  Country: US (occurrence: US)
  Receive Date: 20221206
  Receipt Date: 20221206
  Transmission Date: 20230113
  Serious: No
  Sender: FDA-Public Use
  Company Number: US-ABBVIE-4205833

PATIENT
  Age: 72 Year
  Sex: Female

DRUGS (2)
  1. DUOPA [Suspect]
     Active Substance: CARBIDOPA\LEVODOPA
     Indication: Parkinson^s disease
     Dosage: MORNING DOSE: 7ML (6-9ML), CONTINUOUS DOSE: 2.5ML/HR (1.5-3.5), EXTRA DOSE: 2 ML (1-2ML) EVERY HOUR.
     Route: 050
     Dates: start: 20220418
  2. DUOPA [Suspect]
     Active Substance: CARBIDOPA\LEVODOPA

REACTIONS (5)
  - Dyskinesia [Unknown]
  - Hot flush [Unknown]
  - Skin discolouration [Unknown]
  - Asthenia [Unknown]
  - On and off phenomenon [Unknown]

NARRATIVE: CASE EVENT DATE: 20221001
